FAERS Safety Report 9899481 (Version 2)
Quarter: 2014Q2

REPORT INFORMATION
  Report Type: Spontaneous
  Country: US (occurrence: US)
  Receive Date: 20140214
  Receipt Date: 20140424
  Transmission Date: 20141212
  Serious: No
  Sender: FDA-Public Use
  Company Number: US-PFIZER INC-2014041506

PATIENT
  Age: 66 Year
  Sex: Female

DRUGS (5)
  1. LIPITOR [Suspect]
     Dosage: 40 MG, UNK
  2. THEOPHYLLINE [Suspect]
     Dosage: UNK
  3. TRAMADOL HYDROCHLORIDE [Suspect]
     Dosage: 50 MG, UNK
  4. ASPIRIN [Suspect]
     Dosage: UNK
  5. VYVANSE [Suspect]
     Dosage: UNK

REACTIONS (1)
  - Drug hypersensitivity [Unknown]
